FAERS Safety Report 7386462-9 (Version None)
Quarter: 2011Q1

REPORT INFORMATION
  Report Type: 
  Country: None (occurrence: None)
  Receive Date: 20110323
  Receipt Date: 20110308
  Transmission Date: 20110831
  Serious: Yes (Life-Threatening, Hospitalization)
  Sender: FDA-Public Use
  Company Number: 2011MA002299

PATIENT
  Age: 80 Year
  Sex: Male

DRUGS (8)
  1. CELIPROLOL [Concomitant]
  2. TAMSULOSIN [Concomitant]
  3. DIGOXIN [Concomitant]
  4. LOSARTAN [Concomitant]
  5. PARACETAMOL [Concomitant]
  6. WARFARIN [Concomitant]
  7. FERROUS SUL ELX [Suspect]
     Indication: PRODUCT USED FOR UNKNOWN INDICATION
     Dosage: IV
     Route: 042
     Dates: start: 20110219, end: 20110219
  8. BUMETANIDE [Concomitant]

REACTIONS (3)
  - ABDOMINAL PAIN [None]
  - CHILLS [None]
  - DYSPNOEA [None]
